FAERS Safety Report 20151565 (Version 2)
Quarter: 2022Q1

REPORT INFORMATION
  Report Type: Spontaneous
  Country: US (occurrence: US)
  Receive Date: 20211206
  Receipt Date: 20220302
  Transmission Date: 20220423
  Serious: Yes (Other)
  Sender: FDA-Public Use
  Company Number: US-TEVA-2021-US-1985745

PATIENT
  Age: 68 Year
  Sex: Male
  Weight: 86.18 kg

DRUGS (7)
  1. HYDROCHLOROTHIAZIDE\VALSARTAN [Suspect]
     Active Substance: HYDROCHLOROTHIAZIDE\VALSARTAN
     Indication: Hypertension
     Dosage: VALSARTAN 320 MG/HYDROCHLOROTHIAZIDE 12.5 MG
     Route: 065
     Dates: start: 20141112, end: 20150205
  2. HYDROCHLOROTHIAZIDE\VALSARTAN [Suspect]
     Active Substance: HYDROCHLOROTHIAZIDE\VALSARTAN
     Dosage: VALSARTAN 320 MG/HYDROCHLOROTHIAZIDE 25 MG
     Route: 065
     Dates: start: 20150306, end: 20150709
  3. HYDROCHLOROTHIAZIDE\VALSARTAN [Suspect]
     Active Substance: HYDROCHLOROTHIAZIDE\VALSARTAN
     Dosage: VALSARTAN 320 MG/HYDROCHLOROTHIAZIDE 25 MG
     Route: 065
     Dates: start: 20150909, end: 20160620
  4. HYDROCHLOROTHIAZIDE\VALSARTAN [Suspect]
     Active Substance: HYDROCHLOROTHIAZIDE\VALSARTAN
     Indication: Hypertension
     Dosage: VALSARTAN 320 MG/HYDROCHLOROTHIAZIDE 25 MG
     Route: 065
     Dates: start: 20150809, end: 20150809
  5. HYDROCHLOROTHIAZIDE\VALSARTAN [Suspect]
     Active Substance: HYDROCHLOROTHIAZIDE\VALSARTAN
     Dosage: VALSARTAN 320 MG/HYDROCHLOROTHIAZIDE 25 MG
     Route: 065
     Dates: start: 20170110, end: 20170110
  6. HYDROCHLOROTHIAZIDE\VALSARTAN [Suspect]
     Active Substance: HYDROCHLOROTHIAZIDE\VALSARTAN
     Indication: Hypertension
     Dosage: VALSARTAN 320 MG/HYDROCHLOROTHIAZIDE 25 MG
     Route: 065
     Dates: start: 20170217, end: 20170217
  7. Monoxodile [Concomitant]
     Indication: Hypertension
     Route: 065

REACTIONS (2)
  - Prostate cancer [Recovered/Resolved]
  - Neuropathy peripheral [Unknown]

NARRATIVE: CASE EVENT DATE: 20190101
